FAERS Safety Report 7302500-3 (Version None)
Quarter: 2011Q1

REPORT INFORMATION
  Report Type: 
  Country: None (occurrence: None)
  Receive Date: 20110218
  Receipt Date: 20110214
  Transmission Date: 20110831
  Serious: Yes (Hospitalization, Other)
  Sender: FDA-Public Use
  Company Number: CN-ROXANE LABORATORIES, INC.-2011-RO-00176RO

PATIENT
  Age: 41 Year
  Sex: Male

DRUGS (4)
  1. ADEFOVIR DIPIVOXIL KIT [Suspect]
     Indication: ANTIRETROVIRAL THERAPY
     Dosage: 10 MG
  2. LAMIVUDINE [Suspect]
     Indication: ANTIRETROVIRAL THERAPY
     Dosage: 0.1 G
  3. PREDNISONE [Suspect]
     Indication: SYSTEMIC LUPUS ERYTHEMATOSUS
     Route: 048
     Dates: start: 20091201
  4. PREDNISONE [Suspect]
     Dosage: 20 MG

REACTIONS (6)
  - ACUTE HEPATIC FAILURE [None]
  - PERITONITIS BACTERIAL [None]
  - HEPATITIS B [None]
  - HEPATIC ENCEPHALOPATHY [None]
  - HEPATIC CIRRHOSIS [None]
  - HEPATIC FAILURE [None]
